FAERS Safety Report 4369820-6 (Version None)
Quarter: 2004Q2

REPORT INFORMATION
  Report Type: 
  Country: None (occurrence: None)
  Receive Date: 20040603
  Receipt Date: 20040526
  Transmission Date: 20050107
  Serious: Yes (Disabling)
  Sender: FDA-Public Use
  Company Number: US-MERCK-0405USA01994

PATIENT
  Age: 65 Year
  Sex: Male

DRUGS (9)
  1. ASPIRIN [Concomitant]
     Route: 065
  2. CLONIDINE [Concomitant]
     Route: 065
  3. HYPERICIN [Concomitant]
     Route: 065
  4. IBUPROFEN [Concomitant]
     Route: 065
  5. COZAAR [Concomitant]
     Route: 048
  6. SINGULAIR [Suspect]
     Indication: BRONCHITIS
     Route: 048
     Dates: start: 20040401, end: 20040101
  7. TRILAFON [Concomitant]
     Route: 065
  8. VIOXX [Concomitant]
     Route: 048
  9. ARTANE [Concomitant]
     Route: 065

REACTIONS (4)
  - BRONCHITIS [None]
  - GASTROINTESTINAL DISORDER [None]
  - IRRITABILITY [None]
  - SINUSITIS [None]
